FAERS Safety Report 4959924-9 (Version None)
Quarter: 2006Q1

REPORT INFORMATION
  Report Type: 
  Country: None (occurrence: None)
  Receive Date: 20060331
  Receipt Date: 20050419
  Transmission Date: 20060701
  Serious: Yes (Death, Hospitalization)
  Sender: FDA-Public Use
  Company Number: US-MERCK-0504USA03712

PATIENT
  Age: 71 Year
  Sex: Male
  Weight: 68 kg

DRUGS (5)
  1. VIOXX [Suspect]
     Indication: ARTHRITIS
     Route: 048
     Dates: start: 19990101, end: 20000101
  2. TYLENOL (CAPLET) [Concomitant]
     Route: 065
  3. DEPAKOTE [Concomitant]
     Route: 065
  4. RISPERDAL [Concomitant]
     Route: 065
  5. ZOLOFT [Concomitant]
     Route: 065

REACTIONS (14)
  - CAROTID ARTERY STENOSIS [None]
  - CEREBROVASCULAR ACCIDENT [None]
  - DEMENTIA [None]
  - DEPRESSION [None]
  - DIABETES MELLITUS [None]
  - EMBOLIC STROKE [None]
  - HEART VALVE INSUFFICIENCY [None]
  - INCONTINENCE [None]
  - ISCHAEMIA [None]
  - OPTIC NEURITIS [None]
  - PNEUMONIA [None]
  - PULMONARY HYPERTENSION [None]
  - SINUS TACHYCARDIA [None]
  - SUPRAVENTRICULAR EXTRASYSTOLES [None]
